FAERS Safety Report 5412596-1 (Version None)
Quarter: 2007Q3

REPORT INFORMATION
  Report Type: 
  Country: None (occurrence: None)
  Receive Date: 20070809
  Receipt Date: 20070806
  Transmission Date: 20080115
  Serious: Yes (Life-Threatening)
  Sender: FDA-Public Use
  Company Number: 2007-162125-NL

PATIENT
  Age: 27 Year
  Sex: Female

DRUGS (2)
  1. ETONOGESTREL [Suspect]
     Dosage: DF
  2. CITALOPRAM HYDROBROMIDE [Concomitant]

REACTIONS (1)
  - DEPRESSION SUICIDAL [None]
